FAERS Safety Report 13031199 (Version 5)
Quarter: 2017Q1

REPORT INFORMATION
  Report Type: Spontaneous
  Country: CA (occurrence: CA)
  Receive Date: 20161215
  Receipt Date: 20170330
  Transmission Date: 20170428
  Serious: Yes (Other)
  Sender: FDA-Public Use
  Company Number: CA-GLAXOSMITHKLINE-CA2016GSK184268

PATIENT
  Age: 54 Year
  Sex: Female

DRUGS (3)
  1. NUCALA [Suspect]
     Active Substance: MEPOLIZUMAB
     Indication: ASTHMA
     Dosage: 100 MG, Z
     Route: 042
  2. NUCALA [Suspect]
     Active Substance: MEPOLIZUMAB
     Dosage: 100 MG, UNK
     Route: 042
     Dates: start: 20170127
  3. VENTOLIN [Suspect]
     Active Substance: ALBUTEROL SULFATE
     Indication: ASTHMA
     Dosage: UNK

REACTIONS (10)
  - Type 2 diabetes mellitus [Unknown]
  - Sinusitis [Recovered/Resolved]
  - Nasal mucosal discolouration [Recovered/Resolved]
  - Rhinorrhoea [Unknown]
  - Cheilitis [Recovered/Resolved]
  - Nasal congestion [Unknown]
  - Nasopharyngitis [Unknown]
  - Cough [Recovered/Resolved]
  - Sputum discoloured [Recovered/Resolved]
  - Hypertension [Unknown]

NARRATIVE: CASE EVENT DATE: 201702
